FAERS Safety Report 17469251 (Version 1)
Quarter: 2020Q1

REPORT INFORMATION
  Report Type: Spontaneous
  Country: US (occurrence: US)
  Receive Date: 20200227
  Receipt Date: 20200227
  Transmission Date: 20200409
  Serious: No
  Sender: FDA-Public Use
  Company Number: US-ZYDUS-045131

PATIENT
  Sex: Female

DRUGS (1)
  1. DEXTROAMPHETAMINE/AMPHETAMINE [Suspect]
     Active Substance: AMPHETAMINE\DEXTROAMPHETAMINE
     Indication: PRODUCT USED FOR UNKNOWN INDICATION
     Route: 048
     Dates: start: 2019

REACTIONS (3)
  - Drug ineffective [Unknown]
  - Product taste abnormal [Unknown]
  - Abdominal discomfort [Unknown]

NARRATIVE: CASE EVENT DATE: 2019
